FAERS Safety Report 24781865 (Version 1)
Quarter: 2024Q4

REPORT INFORMATION
  Report Type: Spontaneous
  Country: CN (occurrence: CN)
  Receive Date: 20241227
  Receipt Date: 20241227
  Transmission Date: 20250114
  Serious: Yes (Other)
  Sender: JIANGSU HANSOH PHARMACEUTICAL
  Company Number: CN-Jiangsu Hansoh Pharmaceutical Co., Ltd-2167890

PATIENT
  Age: 62 Year
  Sex: Male
  Weight: 61 kg

DRUGS (1)
  1. GEMCITABINE HYDROCHLORIDE [Suspect]
     Active Substance: GEMCITABINE HYDROCHLORIDE
     Indication: Pancreatic carcinoma
     Dates: start: 20241129, end: 20241129

REACTIONS (9)
  - Atrial fibrillation [Recovering/Resolving]
  - Blood pressure decreased [Unknown]
  - Electrocardiogram T wave abnormal [Unknown]
  - Supraventricular extrasystoles [Unknown]
  - Atrial tachycardia [Unknown]
  - Heart rate decreased [Unknown]
  - Tricuspid valve incompetence [Unknown]
  - Pulmonary valve incompetence [Unknown]
  - Ventricular hypokinesia [Unknown]

NARRATIVE: CASE EVENT DATE: 20241130
